FAERS Safety Report 8549076-0 (Version None)
Quarter: 2012Q3

REPORT INFORMATION
  Report Type: 
  Country: None (occurrence: None)
  Receive Date: 20120730
  Receipt Date: 20120725
  Transmission Date: 20120928
  Serious: No
  Sender: FDA-Public Use
  Company Number: US-PFIZER INC-2012180586

PATIENT
  Sex: Female
  Weight: 95.24 kg

DRUGS (22)
  1. PROZAC [Interacting]
     Dosage: 20 MG, 1X/DAY
     Dates: start: 20120301, end: 20120702
  2. HYDROCHLOROTHIAZIDE [Concomitant]
     Indication: HYPERTENSION
     Dosage: 12.5 MG, UNK
  3. PRILOSEC [Concomitant]
     Dosage: 20 MG, 2X/DAY
  4. PERCOCET [Concomitant]
     Dosage: 350/7.5 MG, UNK
  5. MORPHINE [Suspect]
     Indication: BACK PAIN
     Dosage: 15 MG, 3X/DAY
     Route: 048
  6. PRINIVIL [Concomitant]
     Indication: HYPERTENSION
     Dosage: UNK
  7. CALAN [Concomitant]
     Indication: HYPERTENSION
     Dosage: 240 MG, UNK
  8. ESTRACE [Concomitant]
     Dosage: 1 MG, 1X/DAY
  9. CITRAZINE [Concomitant]
     Dosage: 10 MG, 1X/DAY
  10. MORPHINE [Interacting]
     Dosage: 30 MG, 3X/DAY
     Route: 048
  11. CHANTIX [Concomitant]
     Dosage: 1 MG, 2X/DAY
  12. PROZAC [Interacting]
     Indication: DEPRESSION
     Dosage: 10 MG, 1X/DAY
     Dates: start: 19950101
  13. PRAVASTATIN [Concomitant]
     Dosage: 20 MG, 1X/DAY
  14. KLONOPIN [Concomitant]
     Dosage: 1 MG, 2X/DAY
  15. ALBUTEROL [Concomitant]
     Indication: ASTHMA
     Dosage: UNK, AS NEEDED
  16. THEO-DUR [Concomitant]
     Dosage: UNK
  17. VOLTAREN [Concomitant]
     Dosage: 75 MG, 1X/DAY
  18. BENTYL [Concomitant]
     Dosage: 20 MG, 3X/DAY
  19. DITROPAN [Concomitant]
     Dosage: 5 MG, 1X/DAY
  20. ZOFRAN [Concomitant]
     Dosage: 4 MG, AS NEEDED
  21. QVAR 40 [Concomitant]
     Indication: ASTHMA
     Dosage: UNK
  22. METAXALONE [Concomitant]
     Indication: MUSCLE SPASMS
     Dosage: 800 MG, UNK

REACTIONS (3)
  - DRUG INEFFECTIVE [None]
  - DRUG INTERACTION [None]
  - SLEEP APNOEA SYNDROME [None]
